FAERS Safety Report 10232384 (Version 1)
Quarter: 2014Q2

REPORT INFORMATION
  Report Type: Spontaneous
  Country: US (occurrence: US)
  Receive Date: 20140612
  Receipt Date: 20140612
  Transmission Date: 20141212
  Serious: No
  Sender: FDA-Public Use
  Company Number: US-BAYER-2014-088094

PATIENT
  Sex: Female

DRUGS (2)
  1. BETASERON [Suspect]
  2. COPAXONE [Suspect]

REACTIONS (2)
  - Oral candidiasis [None]
  - Onychomycosis [None]
